FAERS Safety Report 21187872 (Version 1)
Quarter: 2022Q3

REPORT INFORMATION
  Report Type: Spontaneous
  Country: CA (occurrence: CA)
  Receive Date: 20220809
  Receipt Date: 20220809
  Transmission Date: 20221027
  Serious: Yes (Other)
  Sender: FDA-Public Use
  Company Number: CA-BAXTER-2022BAX016633

PATIENT
  Age: 32 Year
  Sex: Female

DRUGS (13)
  1. IFOSFAMIDE [Suspect]
     Active Substance: IFOSFAMIDE
     Indication: Angiocentric lymphoma
     Dosage: INTRAVENOUS (NOT OTHERWISE SPECIFIED)
     Route: 042
  2. IFOSFAMIDE [Suspect]
     Active Substance: IFOSFAMIDE
     Dosage: DOSAGE FORM: SOLUTION FOR INFUSION, INTRAVENOUS (NOT OTHERWISE SPECIFIED)
     Route: 042
  3. MESNA [Suspect]
     Active Substance: MESNA
     Indication: Angiocentric lymphoma
     Dosage: 300.0 MG/M2, 1 EVERY 1 DAYS, DOSAGE FORM: NOT SPECIFIED, INTRAVENOUS (NOT OTHERWISE SPECIFIED)
     Route: 042
  4. MESNA [Suspect]
     Active Substance: MESNA
     Dosage: 300.0 MG/M2, 1 EVERY 1 DAYS, DOSAGE FORM: SOLUTION FOR INFUSION, INTRAVENOUS (NOT OTHERWISE SPECIFIE
     Route: 042
  5. DEXAMETHASONE [Suspect]
     Active Substance: DEXAMETHASONE
     Indication: Angiocentric lymphoma
     Dosage: DOSAGE FORM: NOT SPECIFIED
     Route: 065
  6. ETOPOSIDE [Suspect]
     Active Substance: ETOPOSIDE
     Indication: Angiocentric lymphoma
     Dosage: INTRAVENOUS (NOT OTHERWISE SPECIFIED)
     Route: 042
  7. ETOPOSIDE [Suspect]
     Active Substance: ETOPOSIDE
     Dosage: DOSAGE FORM: NOT SPECIFIED, INTRAVENOUS (NOT OTHERWISE SPECIFIED)
     Route: 042
  8. GRANULOCYTE COLONY-STIMULATING FACTOR NOS [Suspect]
     Active Substance: GRANULOCYTE COLONY-STIMULATING FACTOR NOS
     Indication: Angiocentric lymphoma
     Dosage: UNK
     Route: 065
  9. ASPARAGINASE [Suspect]
     Active Substance: ASPARAGINASE
     Indication: Angiocentric lymphoma
     Dosage: DOSAGE FORM: POWDER FOR SOLUTION INTRAMUSCULAR
     Route: 030
  10. ASPARAGINASE [Suspect]
     Active Substance: ASPARAGINASE
     Dosage: UNK
     Route: 030
  11. LEUCOVORIN [Suspect]
     Active Substance: LEUCOVORIN
     Indication: Angiocentric lymphoma
     Dosage: 1500.0 MG/M2, 4 EVERY 1 DAYS,  INTRAVENOUS (NOT OTHERWISE SPECIFIED)
     Route: 042
  12. LEUCOVORIN [Suspect]
     Active Substance: LEUCOVORIN
     Dosage: 1500.0 MG/M2, 4 EVERY 1 DAYS, DOSAGE FORM: NOT SPECIFIED, INTRAVENOUS (NOT OTHERWISE SPECIFIED)
     Route: 042
  13. METHOTREXATE [Suspect]
     Active Substance: METHOTREXATE
     Indication: Angiocentric lymphoma
     Dosage: 2.0 DAYS
     Route: 048

REACTIONS (2)
  - Second primary malignancy [Recovered/Resolved]
  - T-cell lymphoma refractory [Recovered/Resolved]
